FAERS Safety Report 7064049-5 (Version None)
Quarter: 2010Q4

REPORT INFORMATION
  Report Type: 
  Country: None (occurrence: None)
  Receive Date: 20101026
  Receipt Date: 20101013
  Transmission Date: 20110411
  Serious: Yes (Other)
  Sender: FDA-Public Use
  Company Number: GB-MYLANLABS-2010S1019056

PATIENT
  Age: 11 Year
  Sex: Female

DRUGS (3)
  1. BUPIVACAINE HCL [Suspect]
     Indication: POSTOPERATIVE ANALGESIA
     Dosage: 10MLS OF 0.25%
     Route: 008
  2. BUPIVACAINE HCL [Suspect]
     Route: 008
  3. FENTANYL CITRATE [Suspect]
     Indication: POSTOPERATIVE ANALGESIA
     Dosage: 2 MICROL/ML
     Route: 008

REACTIONS (2)
  - HYPOAESTHESIA [None]
  - PARALYSIS [None]
